FAERS Safety Report 5684721-9 (Version None)
Quarter: 2008Q1

REPORT INFORMATION
  Report Type: 
  Country: None (occurrence: None)
  Receive Date: 20080328
  Receipt Date: 19810330
  Transmission Date: 20080703
  Serious: Yes (Death, Other)
  Sender: FDA-Public Use
  Company Number: GB-ROCHE-1927

PATIENT
  Age: 61 Year
  Sex: Female
  Weight: 68.2 kg

DRUGS (1)
  1. NAPROXEN SODIUM [Suspect]
     Route: 048
     Dates: start: 19810118, end: 19810122

REACTIONS (12)
  - ARTERIOSCLEROSIS CORONARY ARTERY [None]
  - CARDIOMEGALY [None]
  - CEREBRAL ARTERIOSCLEROSIS [None]
  - CHOLELITHIASIS [None]
  - COMA [None]
  - DEATH [None]
  - GASTRITIS EROSIVE [None]
  - HAEMATEMESIS [None]
  - HEPATIC CIRRHOSIS [None]
  - PULMONARY OEDEMA [None]
  - SHOCK [None]
  - UTERINE LEIOMYOMA [None]
